FAERS Safety Report 6386812-6 (Version None)
Quarter: 2009Q4

REPORT INFORMATION
  Report Type: 
  Country: None (occurrence: None)
  Receive Date: 20091002
  Receipt Date: 20090928
  Transmission Date: 20100525
  Serious: Yes (Hospitalization)
  Sender: FDA-Public Use
  Company Number: B0595216A

PATIENT
  Sex: Male

DRUGS (6)
  1. AUGMENTIN '125' [Suspect]
     Indication: DRUG USE FOR UNKNOWN INDICATION
     Route: 048
     Dates: start: 20090725, end: 20090803
  2. CIFLOX [Suspect]
     Route: 042
     Dates: start: 20090803, end: 20090817
  3. TAZOCILLINE [Suspect]
     Route: 065
     Dates: start: 20090803, end: 20090818
  4. TRIFLUCAN [Suspect]
     Route: 065
     Dates: start: 20090806, end: 20090822
  5. FLAGYL [Suspect]
     Route: 065
     Dates: start: 20090729, end: 20090827
  6. ZYVOXID [Suspect]
     Dosage: 600MG TWICE PER DAY
     Route: 048
     Dates: start: 20090812, end: 20090819

REACTIONS (5)
  - CHOLECYSTITIS [None]
  - HEPATIC ENZYME ABNORMAL [None]
  - HEPATOSPLENOMEGALY [None]
  - HYPERBILIRUBINAEMIA [None]
  - JAUNDICE CHOLESTATIC [None]
